FAERS Safety Report 24939893 (Version 4)
Quarter: 2025Q4

REPORT INFORMATION
  Report Type: Report from Study
  Country: JP (occurrence: JP)
  Receive Date: 20250207
  Receipt Date: 20251222
  Transmission Date: 20260117
  Serious: Yes (Other)
  Sender: ROCHE
  Company Number: JP-CHUGAI-2025003012

PATIENT
  Age: 87 Year
  Sex: Male
  Weight: 67.7 kg

DRUGS (19)
  1. PIASKY [Suspect]
     Active Substance: CROVALIMAB-AKKZ
     Indication: Paroxysmal nocturnal haemoglobinuria
     Dosage: 1000MG/DAY
     Route: 041
     Dates: start: 20241022, end: 20241022
  2. PIASKY [Suspect]
     Active Substance: CROVALIMAB-AKKZ
     Dosage: 340MG/DAY
     Route: 058
     Dates: start: 20241023, end: 20241119
  3. PIASKY [Suspect]
     Active Substance: CROVALIMAB-AKKZ
     Dosage: 680MG/DAY
     Route: 058
     Dates: start: 20241217, end: 20250114
  4. PIASKY [Suspect]
     Active Substance: CROVALIMAB-AKKZ
     Dosage: 680MG/DAY
     Route: 058
     Dates: start: 20250318, end: 20250318
  5. PIASKY [Suspect]
     Active Substance: CROVALIMAB-AKKZ
     Dosage: 680MG/DAY
     Route: 058
     Dates: start: 20250422, end: 20250422
  6. PIASKY [Suspect]
     Active Substance: CROVALIMAB-AKKZ
     Dosage: 680MG/DAY
     Route: 058
     Dates: start: 20250507, end: 20250507
  7. PIASKY [Suspect]
     Active Substance: CROVALIMAB-AKKZ
     Dosage: 680MG/DAY
     Route: 058
     Dates: start: 20250520, end: 20250520
  8. PIASKY [Suspect]
     Active Substance: CROVALIMAB-AKKZ
     Dosage: 680MG/DAY
     Route: 058
     Dates: start: 20250603, end: 20250603
  9. PIASKY [Suspect]
     Active Substance: CROVALIMAB-AKKZ
     Dosage: 680MG/DAY
     Route: 058
     Dates: start: 20250805, end: 20250805
  10. PIASKY [Suspect]
     Active Substance: CROVALIMAB-AKKZ
     Dosage: 680MG/DAY
     Route: 058
     Dates: start: 20250909, end: 20250909
  11. PIASKY [Suspect]
     Active Substance: CROVALIMAB-AKKZ
     Dosage: 680MG/DAY
     Route: 058
     Dates: start: 20251014
  12. SPIRONOLACTONE [Concomitant]
     Active Substance: SPIRONOLACTONE
     Dosage: UNK
  13. SPIRONOLACTONE [Concomitant]
     Active Substance: SPIRONOLACTONE
  14. LOSARTAN POTASSIUM [Concomitant]
     Active Substance: LOSARTAN POTASSIUM
  15. BISOPROLOL FUMARATE [Concomitant]
     Active Substance: BISOPROLOL FUMARATE
  16. ALFACALCIDOL [Concomitant]
     Active Substance: ALFACALCIDOL
  17. ALENDRONATE [Concomitant]
     Active Substance: ALENDRONATE SODIUM
  18. RABEPRAZOLE SODIUM [Concomitant]
     Active Substance: RABEPRAZOLE SODIUM
  19. PREDONINE [Concomitant]
     Active Substance: PREDNISOLONE

REACTIONS (4)
  - Haemolysis [Recovered/Resolved]
  - Fatigue [Not Recovered/Not Resolved]
  - White blood cell count decreased [Not Recovered/Not Resolved]
  - Neutrophil count decreased [Recovering/Resolving]

NARRATIVE: CASE EVENT DATE: 20241217
